FAERS Safety Report 24557031 (Version 2)
Quarter: 2025Q2

REPORT INFORMATION
  Report Type: Spontaneous
  Country: US (occurrence: US)
  Receive Date: 20241028
  Receipt Date: 20250506
  Transmission Date: 20250717
  Serious: Yes (Other)
  Sender: AUROBINDO
  Company Number: US-AUROBINDO-AUR-APL-2024-052054

PATIENT
  Age: 12 Year
  Sex: Male

DRUGS (1)
  1. METHYLPREDNISOLONE [Suspect]
     Active Substance: METHYLPREDNISOLONE
     Indication: Neuromyelitis optica spectrum disorder
     Dosage: 30 MILLIGRAM/KILOGRAM, ONCE A DAY
     Route: 042

REACTIONS (1)
  - Drug ineffective [Unknown]
